FAERS Safety Report 16113296 (Version 6)
Quarter: 2019Q4

REPORT INFORMATION
  Report Type: Spontaneous
  Country: US (occurrence: US)
  Receive Date: 20190325
  Receipt Date: 20191009
  Transmission Date: 20200122
  Serious: No
  Sender: FDA-Public Use
  Company Number: US-PFIZER INC-2019120709

PATIENT
  Age: 79 Year
  Sex: Female

DRUGS (1)
  1. XELJANZ XR [Suspect]
     Active Substance: TOFACITINIB CITRATE
     Dosage: 11 MG, UNK

REACTIONS (9)
  - Drug ineffective [Unknown]
  - Hand deformity [Unknown]
  - Cyst [Unknown]
  - Cardiac disorder [Unknown]
  - Chronic obstructive pulmonary disease [Unknown]
  - Contusion [Unknown]
  - Arthropathy [Unknown]
  - Erythema [Unknown]
  - Rash macular [Unknown]
